FAERS Safety Report 7375097-X (Version None)
Quarter: 2011Q1

REPORT INFORMATION
  Report Type: 
  Country: None (occurrence: None)
  Receive Date: 20110325
  Receipt Date: 20110317
  Transmission Date: 20110831
  Serious: Yes (Hospitalization)
  Sender: FDA-Public Use
  Company Number: AU-ABBOTT-11P-008-0712073-00

PATIENT

DRUGS (2)
  1. ALUVIA TABLETS [Suspect]
     Indication: HIV INFECTION
     Route: 048
  2. TRUVADA [Concomitant]
     Indication: PRODUCT USED FOR UNKNOWN INDICATION
     Dosage: 1 MANE
     Dates: start: 20110221

REACTIONS (3)
  - PERITONITIS [None]
  - COLITIS [None]
  - GASTRITIS [None]
